FAERS Safety Report 21751944 (Version 1)
Quarter: 2022Q4

REPORT INFORMATION
  Report Type: Spontaneous
  Country: JP (occurrence: JP)
  Receive Date: 20221220
  Receipt Date: 20221220
  Transmission Date: 20230113
  Serious: Yes (Hospitalization)
  Sender: FDA-Public Use
  Company Number: JP-ABBVIE-4213229

PATIENT
  Age: 10 Year
  Sex: Female
  Weight: 40 kg

DRUGS (6)
  1. HUMIRA [Suspect]
     Active Substance: ADALIMUMAB
     Indication: Juvenile idiopathic arthritis
     Route: 058
     Dates: start: 20210922
  2. HUMIRA [Suspect]
     Active Substance: ADALIMUMAB
     Dosage: DRUG RESUMED
  3. METHOTREXATE [Concomitant]
     Active Substance: METHOTREXATE
     Indication: Juvenile idiopathic arthritis
     Dosage: DRUG RESUMED
  4. METHOTREXATE [Concomitant]
     Active Substance: METHOTREXATE
     Indication: Juvenile idiopathic arthritis
  5. PREDNISOLONE [Concomitant]
     Active Substance: PREDNISOLONE
     Indication: Juvenile idiopathic arthritis
  6. NAPROXEN [Concomitant]
     Active Substance: NAPROXEN
     Indication: Juvenile idiopathic arthritis

REACTIONS (2)
  - COVID-19 [Recovered/Resolved]
  - Fluid intake reduced [Unknown]

NARRATIVE: CASE EVENT DATE: 20220308
